FAERS Safety Report 16176564 (Version 1)
Quarter: 2019Q2

REPORT INFORMATION
  Report Type: Spontaneous
  Country: US (occurrence: US)
  Receive Date: 20190409
  Receipt Date: 20190409
  Transmission Date: 20190711
  Serious: Yes (Other)
  Sender: FDA-Public Use
  Company Number: US-NAPPMUNDI-USA-2019-0146790

PATIENT
  Sex: Female

DRUGS (2)
  1. OXYCONTIN [Suspect]
     Active Substance: OXYCODONE HYDROCHLORIDE
     Dosage: 40 MG, DAILY IN THE PM
     Route: 048
     Dates: start: 2013
  2. OXYCONTIN [Suspect]
     Active Substance: OXYCODONE HYDROCHLORIDE
     Indication: PAIN
     Dosage: 60 MG, DAILY IN THE AM
     Route: 048
     Dates: start: 2013

REACTIONS (5)
  - Headache [Recovering/Resolving]
  - Road traffic accident [Unknown]
  - Therapy cessation [Recovered/Resolved]
  - Back injury [Unknown]
  - Therapeutic product effect decreased [Unknown]
